FAERS Safety Report 23355793 (Version 1)
Quarter: 2024Q1

REPORT INFORMATION
  Report Type: Spontaneous
  Country: AU (occurrence: AU)
  Receive Date: 20240102
  Receipt Date: 20240102
  Transmission Date: 20240409
  Serious: Yes (Death, Hospitalization)
  Sender: FDA-Public Use
  Company Number: AU-BRAEBURN INC-2019BBN00025

PATIENT
  Age: 68 Year
  Sex: Male

DRUGS (21)
  1. BUPRENORPHINE [Suspect]
     Active Substance: BUPRENORPHINE
     Indication: Drug dependence
     Dosage: 96 MILLIGRAM, MONTHLY
     Route: 058
     Dates: start: 20190712, end: 20190712
  2. BUPRENORPHINE [Suspect]
     Active Substance: BUPRENORPHINE
     Dosage: 96 MILLIGRAM, MONTHLY
     Route: 058
     Dates: start: 20190809, end: 20190809
  3. BUPRENORPHINE [Suspect]
     Active Substance: BUPRENORPHINE
     Dosage: 128 MILLIGRAM, MONTHLY
     Route: 058
     Dates: start: 20190513, end: 20190513
  4. BUPRENORPHINE [Suspect]
     Active Substance: BUPRENORPHINE
     Dosage: 128 MILLIGRAM, MONTHLY
     Route: 058
     Dates: start: 20190612, end: 20190612
  5. ASPIRIN [Concomitant]
     Active Substance: ASPIRIN
     Indication: Product used for unknown indication
     Dosage: 100 MILLIGRAM, QD
     Route: 065
  6. ATORVASTATIN [Concomitant]
     Active Substance: ATORVASTATIN
     Indication: Product used for unknown indication
     Dosage: 80 MILLIGRAM, QD
     Route: 065
  7. BISOPROLOL [Concomitant]
     Active Substance: BISOPROLOL\BISOPROLOL FUMARATE
     Indication: Product used for unknown indication
     Dosage: 1.25 MILLIGRAM, QD
     Route: 065
  8. BUPRENORPHINE\NALOXONE [Concomitant]
     Active Substance: BUPRENORPHINE\NALOXONE
     Indication: Product used for unknown indication
     Dosage: UNK,
     Route: 060
  9. DESVENLAFAXINE [Concomitant]
     Active Substance: DESVENLAFAXINE
     Indication: Product used for unknown indication
     Dosage: 100 MILLIGRAM, QD
     Route: 065
  10. FUROSEMIDE [Concomitant]
     Active Substance: FUROSEMIDE
     Indication: Product used for unknown indication
     Dosage: 500 MILLIGRAM, BID
     Route: 065
  11. GABAPENTIN [Concomitant]
     Active Substance: GABAPENTIN
     Indication: Product used for unknown indication
     Dosage: 100 MILLIGRAM, BID
     Route: 065
  12. ISOPHANE INSULIN [Concomitant]
     Active Substance: INSULIN NOS
     Indication: Product used for unknown indication
     Dosage: 27 DOSAGE FORM, QD  |  DAILY DOSE UNIT : DOSAGE FORMS  |  UNIT DOSE UNIT : DOSAGE FORMS
     Route: 065
  13. IVABRADINE [Concomitant]
     Active Substance: IVABRADINE
     Indication: Product used for unknown indication
     Dosage: 5 MILLIGRAM, BID
     Route: 065
  14. LANTHANUM [Concomitant]
     Active Substance: LANTHANUM
     Indication: Product used for unknown indication
     Dosage: 1 DOSAGE FORM, Q8H  |  DAILY DOSE UNIT : DOSAGE FORMS  |  UNIT DOSE UNIT : DOSAGE FORMS
     Route: 065
  15. MAGNESIUM [Concomitant]
     Active Substance: MAGNESIUM
     Indication: Product used for unknown indication
     Dosage: 2 AT THE DAY AND 4 AT THE NIGHT
     Route: 065
  16. PANTOPRAZOLE [Concomitant]
     Active Substance: PANTOPRAZOLE
     Indication: Product used for unknown indication
     Dosage: 40 MILLIGRAM, QD
     Route: 065
  17. ACETAMINOPHEN [Concomitant]
     Active Substance: ACETAMINOPHEN
     Indication: Product used for unknown indication
     Dosage: 2 DOSAGE FORM, PRN  |  UNIT DOSE UNIT : DOSAGE FORMS
     Route: 065
  18. ALBUTEROL [Concomitant]
     Active Substance: ALBUTEROL
     Indication: Product used for unknown indication
     Dosage: 200 MICROGRAM, PRN
     Route: 065
  19. SITAGLIPTIN [Concomitant]
     Active Substance: SITAGLIPTIN
     Indication: Product used for unknown indication
     Dosage: 25 MILLIGRAM, QD
     Route: 065
  20. CINACALCET [Concomitant]
     Active Substance: CINACALCET
     Indication: Product used for unknown indication
     Dosage: 60 MILLIGRAM, QD
     Route: 065
  21. NICOTINE [Concomitant]
     Active Substance: NICOTINE
     Indication: Product used for unknown indication
     Dosage: UNK
     Route: 065

REACTIONS (4)
  - Sepsis [Fatal]
  - End stage renal disease [Fatal]
  - Neurodermatitis [Not Recovered/Not Resolved]
  - Arthralgia [Not Recovered/Not Resolved]

NARRATIVE: CASE EVENT DATE: 20190722
